FAERS Safety Report 11044713 (Version 2)
Quarter: 2015Q2

REPORT INFORMATION
  Report Type: Spontaneous
  Country: BR (occurrence: BR)
  Receive Date: 20150417
  Receipt Date: 20150521
  Transmission Date: 20150821
  Serious: Yes (Hospitalization, Other)
  Sender: FDA-Public Use
  Company Number: BR-JNJFOC-20150411044

PATIENT
  Sex: Male
  Weight: 37.8 kg

DRUGS (3)
  1. REMICADE [Suspect]
     Active Substance: INFLIXIMAB
     Indication: CROHN^S DISEASE
     Route: 042
     Dates: start: 201410, end: 2015
  2. REMICADE [Suspect]
     Active Substance: INFLIXIMAB
     Indication: CROHN^S DISEASE
     Route: 042
     Dates: start: 2015
  3. REMICADE [Suspect]
     Active Substance: INFLIXIMAB
     Indication: CROHN^S DISEASE
     Route: 042
     Dates: start: 2013

REACTIONS (10)
  - Depression [Not Recovered/Not Resolved]
  - Drug ineffective [Not Recovered/Not Resolved]
  - Weight decreased [Recovering/Resolving]
  - Bacterial infection [Recovered/Resolved]
  - Crohn^s disease [Not Recovered/Not Resolved]
  - Eating disorder symptom [Unknown]
  - Gastrointestinal fungal infection [Recovered/Resolved]
  - Malnutrition [Unknown]
  - Functional gastrointestinal disorder [Not Recovered/Not Resolved]
  - Laboratory test abnormal [Unknown]

NARRATIVE: CASE EVENT DATE: 2015
